FAERS Safety Report 22153128 (Version 1)
Quarter: 2023Q1

REPORT INFORMATION
  Report Type: Spontaneous
  Country: US (occurrence: US)
  Receive Date: 20230329
  Receipt Date: 20230329
  Transmission Date: 20230418
  Serious: Yes (Hospitalization, Other)
  Sender: FDA-Public Use
  Company Number: US-FreseniusKabi-FK202303862

PATIENT
  Age: 51 Year
  Sex: Female
  Weight: 108 kg

DRUGS (22)
  1. CARBOPLATIN [Suspect]
     Active Substance: CARBOPLATIN
     Indication: Cervix carcinoma
     Dosage: DURATION : 2 MONTHS 24 DAYS ?5 AUC, 1Q3W
     Route: 042
     Dates: start: 20221207, end: 20230302
  2. TISOTUMAB VEDOTIN [Suspect]
     Active Substance: TISOTUMAB VEDOTIN
     Indication: Cervix carcinoma
     Dosage: 1Q3W?THERAPY DURATION : 2 MONTHS 24 DAYS
     Route: 042
     Dates: start: 20221207, end: 20230302
  3. PEMBROLIZUMAB [Suspect]
     Active Substance: PEMBROLIZUMAB
     Indication: Cervix carcinoma
     Dosage: 1Q3W?ONGOING END DATE?UNKNOWN
     Route: 042
     Dates: start: 20221207
  4. BEVACIZUMAB [Suspect]
     Active Substance: BEVACIZUMAB
     Indication: Cervix carcinoma
     Dosage: DURATION : 1 MONTH 24 DAYS?1Q3W
     Route: 042
     Dates: start: 20221207, end: 20230130
  5. ADDERALL [Concomitant]
     Active Substance: AMPHETAMINE ASPARTATE\AMPHETAMINE SULFATE\DEXTROAMPHETAMINE SACCHARATE\DEXTROAMPHETAMINE SULFATE
     Indication: Product used for unknown indication
     Dosage: ONGOING END DATE
     Dates: start: 200505
  6. AMLODIPINE [Concomitant]
     Active Substance: AMLODIPINE BESYLATE
     Indication: Product used for unknown indication
     Dosage: ONGOING END DATE
     Dates: start: 200505
  7. CARVEDILOL [Concomitant]
     Active Substance: CARVEDILOL
     Indication: Product used for unknown indication
     Dosage: ONGOING END DATE
     Dates: start: 200505
  8. FLONASE [Concomitant]
     Active Substance: FLUTICASONE PROPIONATE
     Indication: Product used for unknown indication
     Dosage: ONGOING END DATE
     Dates: start: 200504
  9. HYDROXYZINE [Concomitant]
     Active Substance: HYDROXYZINE HYDROCHLORIDE
     Indication: Product used for unknown indication
     Dosage: ONGOING END DATE
     Dates: start: 200504
  10. MELOXICAM [Concomitant]
     Active Substance: MELOXICAM
     Indication: Product used for unknown indication
     Dosage: ONGOING END DATE
     Dates: start: 202003
  11. PAROXETINE [Concomitant]
     Active Substance: PAROXETINE
     Indication: Product used for unknown indication
     Dosage: ONGOING END DATE
     Dates: start: 200609
  12. ALBUTEROL [Concomitant]
     Active Substance: ALBUTEROL
     Indication: Product used for unknown indication
     Dosage: ONGOING  END DATE
     Dates: start: 200504
  13. TRAMADOL [Concomitant]
     Active Substance: TRAMADOL
     Indication: Product used for unknown indication
     Dosage: ONGOING END DATE
     Dates: start: 202003
  14. Afrin(oxymetazoline) [Concomitant]
     Indication: Product used for unknown indication
     Dosage: ONGOING END DATE
     Dates: start: 20221214
  15. Saline nasal spray  (sodium chloride) [Concomitant]
     Indication: Product used for unknown indication
     Dosage: ONGOING END DATE
     Dates: start: 20221214
  16. LOPERAMIDE [Concomitant]
     Active Substance: LOPERAMIDE
     Indication: Product used for unknown indication
     Dosage: ONGOING END DATE
     Dates: start: 20221209
  17. ATROPINE\DIPHENOXYLATE [Concomitant]
     Active Substance: ATROPINE\DIPHENOXYLATE
     Indication: Product used for unknown indication
     Dosage: ONGOING END DATE
     Dates: start: 20221214
  18. ONDANSETRON [Concomitant]
     Active Substance: ONDANSETRON
     Indication: Product used for unknown indication
     Dosage: ONGOING END DATE
     Dates: start: 20221017
  19. PROCHLORPERAZINE [Concomitant]
     Active Substance: PROCHLORPERAZINE
     Indication: Product used for unknown indication
     Dosage: ONGOING END DATE
     Dates: start: 20221017
  20. MAGNESIUM [Concomitant]
     Active Substance: MAGNESIUM
     Indication: Product used for unknown indication
     Dosage: ONGOING END DATE
     Route: 042
     Dates: start: 20230123
  21. PREDNISONE [Concomitant]
     Active Substance: PREDNISONE
     Indication: Product used for unknown indication
     Dosage: ONGOING END DATE
     Dates: start: 20230208
  22. SODIUM CHLORIDE [Concomitant]
     Active Substance: SODIUM CHLORIDE
     Indication: Product used for unknown indication
     Dosage: ONGOING END DATE
     Dates: start: 20221209

REACTIONS (3)
  - Pulmonary embolism [Unknown]
  - Pancytopenia [Recovered/Resolved]
  - Dehydration [Recovered/Resolved]

NARRATIVE: CASE EVENT DATE: 20230227
